FAERS Safety Report 9713465 (Version 1)
Quarter: 2013Q4

REPORT INFORMATION
  Report Type: Other
  Country: US (occurrence: US)
  Receive Date: 20131126
  Receipt Date: 20131126
  Transmission Date: 20140711
  Serious: Yes (Hospitalization)
  Sender: FDA-Public Use
  Company Number: US-SHIRE-ALL1-2013-08113

PATIENT
  Age: 39 Year
  Sex: Female

DRUGS (2)
  1. FIRAZYR [Suspect]
     Indication: HEREDITARY ANGIOEDEMA
     Dosage: 30 MG, AS REQ^D
     Route: 058
     Dates: start: 20120926
  2. FIRAZYR [Suspect]
     Dosage: 30 MG, OTHER (5 DOSES WITHIN 24 HOURS)
     Route: 058
     Dates: start: 20131119

REACTIONS (2)
  - Hospitalisation [Unknown]
  - Prescribed overdose [Unknown]
